FAERS Safety Report 17046433 (Version 2)
Quarter: 2019Q4

REPORT INFORMATION
  Report Type: Spontaneous
  Country: US (occurrence: US)
  Receive Date: 20191119
  Receipt Date: 20191220
  Transmission Date: 20200122
  Serious: No
  Sender: FDA-Public Use
  Company Number: US-CELGENEUS-USA-20191104215

PATIENT
  Age: 49 Year
  Sex: Female

DRUGS (10)
  1. OTEZLA [Suspect]
     Active Substance: APREMILAST
     Dosage: 60 MILLIGRAM
     Route: 048
     Dates: start: 2019
  2. LISINOPRIL. [Concomitant]
     Active Substance: LISINOPRIL
     Dosage: 40 MILLIGRAM
     Route: 048
     Dates: start: 20181001
  3. OLOPATADINE. [Concomitant]
     Active Substance: OLOPATADINE
     Dosage: .2 PERCENT
     Route: 047
     Dates: start: 20181121
  4. OTEZLA [Suspect]
     Active Substance: APREMILAST
     Indication: PSORIASIS
     Dosage: STARTER PACK 10,20,30MG ?(DAY 1: 10MG OD, DAY 2: 10 MG BID, DAY 3: 10MG IN AM AND 20 MG IN PM, DAY 4
     Route: 048
     Dates: start: 20191014
  5. LISINOPRIL. [Concomitant]
     Active Substance: LISINOPRIL
     Indication: HYPERTENSION
     Dosage: 40 MILLIGRAM
     Route: 048
     Dates: start: 20180319
  6. SERTRALINE [Concomitant]
     Active Substance: SERTRALINE HYDROCHLORIDE
     Indication: ANXIETY
     Route: 048
     Dates: start: 20180305
  7. FLUTICASONE. [Concomitant]
     Active Substance: FLUTICASONE
     Indication: HYPERSENSITIVITY
     Route: 065
     Dates: start: 20191114
  8. OLOPATADINE. [Concomitant]
     Active Substance: OLOPATADINE
     Indication: EYE IRRITATION
     Dosage: .2 PERCENT
     Route: 047
     Dates: start: 20180702
  9. AMLODIPINE [Concomitant]
     Active Substance: AMLODIPINE BESYLATE
     Indication: HYPERTENSION
     Dosage: 10 MILLIGRAM
     Route: 048
     Dates: start: 20180319
  10. TRIAMCINOLONE [Concomitant]
     Active Substance: TRIAMCINOLONE
     Indication: SKIN IRRITATION
     Route: 061
     Dates: start: 20180702

REACTIONS (5)
  - Hot flush [Unknown]
  - Fungal skin infection [Unknown]
  - Nausea [Recovered/Resolved]
  - Headache [Recovered/Resolved]
  - Diarrhoea [Recovered/Resolved]

NARRATIVE: CASE EVENT DATE: 2019
